FAERS Safety Report 5128832-5 (Version None)
Quarter: 2006Q4

REPORT INFORMATION
  Report Type: 
  Country: None (occurrence: None)
  Receive Date: 20061017
  Receipt Date: 20061006
  Transmission Date: 20070319
  Serious: Yes (Hospitalization)
  Sender: FDA-Public Use
  Company Number: US-SANOFI-SYNTHELABO-A03200606158

PATIENT
  Sex: Male

DRUGS (4)
  1. TESTOSTERONE [Concomitant]
     Dosage: UNK
     Route: 030
  2. MICARDIS [Concomitant]
     Dosage: UNK
     Route: 048
  3. METFORMIN HCL [Concomitant]
     Dosage: UNK
     Route: 048
  4. UROXATRAL [Suspect]
     Indication: BENIGN PROSTATIC HYPERPLASIA
     Route: 048
     Dates: start: 20060929, end: 20061001

REACTIONS (6)
  - BLOOD PRESSURE DECREASED [None]
  - CARDIAC ARREST [None]
  - CARDIO-RESPIRATORY ARREST [None]
  - HYPERHIDROSIS [None]
  - LOSS OF CONSCIOUSNESS [None]
  - PULSE ABSENT [None]
